FAERS Safety Report 11967384 (Version 1)
Quarter: 2016Q1

REPORT INFORMATION
  Report Type: Spontaneous
  Country: US (occurrence: US)
  Receive Date: 20160127
  Receipt Date: 20160127
  Transmission Date: 20160526
  Serious: Yes (Hospitalization, Other)
  Sender: FDA-Public Use
  Company Number: US-ABBVIE-16P-163-1545357-00

PATIENT
  Sex: Female
  Weight: 98.97 kg

DRUGS (4)
  1. SYNTHROID [Suspect]
     Active Substance: LEVOTHYROXINE SODIUM
     Indication: HYPOTHYROIDISM
     Route: 048
     Dates: start: 2015, end: 2015
  2. SYNTHROID [Suspect]
     Active Substance: LEVOTHYROXINE SODIUM
     Indication: HYPOTHYROIDISM
     Dosage: UNKNOWN MANUFACTURER AND UNKNOWN DOSES
     Route: 048
     Dates: end: 2015
  3. LASIX [Concomitant]
     Active Substance: FUROSEMIDE
     Indication: HEREDITARY ANGIOEDEMA
  4. SYNTHROID [Suspect]
     Active Substance: LEVOTHYROXINE SODIUM
     Route: 048
     Dates: start: 201512

REACTIONS (9)
  - Necrotising granulomatous lymphadenitis [Not Recovered/Not Resolved]
  - Smear cervix abnormal [Recovered/Resolved]
  - Lymphadenopathy [Not Recovered/Not Resolved]
  - Endometrial cancer [Recovered/Resolved]
  - Abdominal distension [Recovered/Resolved]
  - Angiocentric lymphoma [Not Recovered/Not Resolved]
  - Pancreatitis [Recovered/Resolved]
  - Back pain [Recovered/Resolved]
  - Thyroid function test abnormal [Recovered/Resolved]

NARRATIVE: CASE EVENT DATE: 2013
